FAERS Safety Report 5590666-5 (Version None)
Quarter: 2008Q1

REPORT INFORMATION
  Report Type: 
  Country: None (occurrence: None)
  Receive Date: 20080114
  Receipt Date: 20080114
  Transmission Date: 20080703
  Serious: Yes (Hospitalization, Other)
  Sender: FDA-Public Use
  Company Number: BR-ABBOTT-07P-020-0422416-00

PATIENT
  Sex: Female
  Weight: 90 kg

DRUGS (9)
  1. HUMIRA [Suspect]
     Indication: RHEUMATOID ARTHRITIS
     Route: 058
     Dates: start: 20050101, end: 20071012
  2. HUMIRA [Suspect]
     Dates: start: 20071012
  3. DICLOFENAC [Concomitant]
     Indication: DRUG USE FOR UNKNOWN INDICATION
     Route: 048
  4. FOLIC ACID [Concomitant]
     Indication: DRUG USE FOR UNKNOWN INDICATION
     Route: 048
  5. LEVOTHYROXINE SODIUM [Concomitant]
     Indication: HYPOTHYROIDISM
     Route: 048
  6. METHOTREXATE [Concomitant]
     Indication: RHEUMATOID ARTHRITIS
  7. CORTISONE ACETATE TAB [Concomitant]
     Indication: RHEUMATOID ARTHRITIS
     Route: 048
  8. VENALOT [Concomitant]
     Indication: CARDIOVASCULAR DISORDER
  9. UNKNOWN ANTIINFLAMMATORIES [Concomitant]
     Indication: RHEUMATOID ARTHRITIS

REACTIONS (5)
  - ATROPHY [None]
  - BUNION [None]
  - JOINT DISLOCATION [None]
  - OSTEOPOROSIS [None]
  - WOUND DEHISCENCE [None]
